FAERS Safety Report 11665075 (Version 1)
Quarter: 2015Q4

REPORT INFORMATION
  Report Type: Spontaneous
  Country: US (occurrence: US)
  Receive Date: 20151027
  Receipt Date: 20151027
  Transmission Date: 20160304
  Serious: Yes (Hospitalization)
  Sender: FDA-Public Use
  Company Number: US-NPS_PHARMACEUTICALS-001366

PATIENT
  Age: 76 Year
  Sex: Female

DRUGS (9)
  1. TPN [Concomitant]
     Active Substance: AMINO ACIDS\DEXTROSE\ELECTROLYTES NOS\SOYBEAN OIL
     Indication: MEDICAL DIET
     Dosage: DF
     Dates: start: 2008
  2. URSODIOL. [Concomitant]
     Active Substance: URSODIOL
     Indication: CHOLELITHIASIS
     Dosage: STREN/VOLUM: 500 MG|FREQU: 3 TIMES A DAY
  3. PEPCID [Concomitant]
     Active Substance: FAMOTIDINE
     Dosage: STREN/VOLUM: 2 CAPSULES|FREQU: DAILY
  4. SYNTHROID [Concomitant]
     Active Substance: LEVOTHYROXINE SODIUM
     Indication: THYROID DISORDER
     Dosage: STREN/VOLUM: 0.12 MG|FREQU: DAILY
  5. AMBIEN [Concomitant]
     Active Substance: ZOLPIDEM TARTRATE
     Indication: INSOMNIA
     Dosage: STREN/VOLUM: 10 MG|FREQU: EVERY NIGHT
  6. NASCOBAL [Concomitant]
     Active Substance: CYANOCOBALAMIN
     Indication: VITAMIN SUPPLEMENTATION
     Dosage: FREQU: ONCE PER WEEK
     Route: 045
  7. GATTEX [Suspect]
     Active Substance: TEDUGLUTIDE\WATER
     Indication: SHORT-BOWEL SYNDROME
     Dosage: DF
     Route: 058
     Dates: start: 201410, end: 201412
  8. GATTEX [Suspect]
     Active Substance: TEDUGLUTIDE\WATER
     Dosage: DF
     Route: 058
  9. DUTOPHANOL [Concomitant]
     Indication: ARTHRITIS
     Dosage: [2 PUFFS EVERY NIGHT]

REACTIONS (3)
  - Gallbladder operation [Recovered/Resolved]
  - Gallbladder disorder [Recovering/Resolving]
  - Stoma complication [Not Recovered/Not Resolved]

NARRATIVE: CASE EVENT DATE: 20141016
